FAERS Safety Report 8142721-3 (Version None)
Quarter: 2012Q1

REPORT INFORMATION
  Report Type: 
  Country: None (occurrence: None)
  Receive Date: 20120216
  Receipt Date: 20120208
  Transmission Date: 20120608
  Serious: Yes (Disabling)
  Sender: FDA-Public Use
  Company Number: US-ABBOTT-12P-163-0888344-00

PATIENT
  Sex: Male

DRUGS (2)
  1. HUMIRA [Suspect]
     Route: 058
     Dates: start: 20110601
  2. HUMIRA [Suspect]
     Indication: PSORIASIS
     Route: 058
     Dates: start: 20080901, end: 20100301

REACTIONS (9)
  - STRESS [None]
  - DRUG INEFFECTIVE [None]
  - PSORIASIS [None]
  - MUSCLE STRAIN [None]
  - INTERVERTEBRAL DISC PROTRUSION [None]
  - BACK PAIN [None]
  - WEIGHT DECREASED [None]
  - ROAD TRAFFIC ACCIDENT [None]
  - PRURITUS [None]
